FAERS Safety Report 21134677 (Version 1)
Quarter: 2022Q3

REPORT INFORMATION
  Report Type: Spontaneous
  Country: US (occurrence: None)
  Receive Date: 20220727
  Receipt Date: 20220727
  Transmission Date: 20221027
  Serious: No
  Sender: FDA-Public Use
  Company Number: 2022A252937

PATIENT

DRUGS (1)
  1. CALQUENCE [Suspect]
     Active Substance: ACALABRUTINIB
     Indication: Leukaemia
     Route: 048

REACTIONS (3)
  - Fatigue [Unknown]
  - Asthenia [Unknown]
  - Bedridden [Unknown]
